FAERS Safety Report 24050996 (Version 1)
Quarter: 2024Q3

REPORT INFORMATION
  Report Type: Spontaneous
  Country: US (occurrence: US)
  Receive Date: 20240704
  Receipt Date: 20240704
  Transmission Date: 20241016
  Serious: Yes (Hospitalization, Other)
  Sender: BOEHRINGER INGELHEIM
  Company Number: US-BoehringerIngelheim-2024-BI-036724

PATIENT
  Sex: Female

DRUGS (1)
  1. MOBIC [Suspect]
     Active Substance: MELOXICAM
     Indication: Arthralgia

REACTIONS (8)
  - Knee arthroplasty [Recovering/Resolving]
  - Nephrolithiasis [Unknown]
  - Myocardial infarction [Unknown]
  - Growth hormone deficiency [Unknown]
  - Circulatory collapse [Unknown]
  - Decreased appetite [Unknown]
  - Asthenia [Unknown]
  - Hypertension [Unknown]

NARRATIVE: CASE EVENT DATE: 20240201
